FAERS Safety Report 16552805 (Version 1)
Quarter: 2019Q3

REPORT INFORMATION
  Report Type: Spontaneous
  Country: US (occurrence: US)
  Receive Date: 20190710
  Receipt Date: 20190710
  Transmission Date: 20191004
  Serious: No
  Sender: FDA-Public Use
  Company Number: US-PFIZER INC-2019292923

PATIENT
  Sex: Female

DRUGS (2)
  1. CHOLESTOFF ORIGINAL [Concomitant]
     Dosage: UNK
  2. LIPITOR [Suspect]
     Active Substance: ATORVASTATIN CALCIUM
     Dosage: UNK

REACTIONS (4)
  - Decreased appetite [Unknown]
  - Blood pressure fluctuation [Unknown]
  - Asthenia [Unknown]
  - Muscle spasms [Unknown]
